FAERS Safety Report 15080568 (Version 3)
Quarter: 2018Q3

REPORT INFORMATION
  Report Type: Report from Study
  Country: JP (occurrence: JP)
  Receive Date: 20180628
  Receipt Date: 20180816
  Transmission Date: 20181010
  Serious: Yes (Hospitalization, Other)
  Sender: FDA-Public Use
  Company Number: JP-BRISTOL-MYERS SQUIBB COMPANY-BMS-2018-058966

PATIENT
  Age: 57 Year
  Sex: Male
  Weight: 42.8 kg

DRUGS (27)
  1. LANSOPRAZOLE. [Suspect]
     Active Substance: LANSOPRAZOLE
     Indication: PROPHYLAXIS
     Dosage: UNK, QD
     Route: 048
  2. CYRAMZA [Concomitant]
     Active Substance: RAMUCIRUMAB
     Indication: GASTRIC CANCER
     Dosage: 350 MG, Q2WK
     Route: 042
     Dates: start: 20180719
  3. AZUNOL                             /00317302/ [Concomitant]
     Indication: STOMATITIS
     Dosage: UNK
     Route: 048
     Dates: start: 20180726
  4. ASVERIN (TIPEPIDINE HIBENZATE) [Concomitant]
     Active Substance: TIPEPIDINE HIBENZATE
     Indication: COUGH
     Dosage: 20 MG, PRN, QD
     Route: 048
     Dates: start: 20180803
  5. CODEINE PHOSPHATE [Concomitant]
     Active Substance: CODEINE PHOSPHATE
     Indication: COUGH
     Dosage: 1 G, PRN, QD
     Route: 048
     Dates: start: 20180804
  6. XYLOCAINE [Concomitant]
     Active Substance: LIDOCAINE HYDROCHLORIDE
     Indication: STOMATITIS
     Dosage: UNK
     Route: 048
     Dates: start: 20180726
  7. ACELIO [Concomitant]
     Active Substance: ACETAMINOPHEN
     Indication: PYREXIA
     Dosage: 1000 MG, PRN
     Route: 042
     Dates: start: 20180804
  8. YD SOLITA T NO.3 [Concomitant]
     Indication: DECREASED APPETITE
     Dosage: 500 MG, QD
     Route: 042
     Dates: start: 20180803, end: 20180806
  9. ALOXI [Concomitant]
     Active Substance: PALONOSETRON HYDROCHLORIDE
     Indication: PROPHYLAXIS
     Dosage: 0.75 MG, BEFORE CHEMOTHERAPY
     Route: 042
     Dates: start: 20180719
  10. DEXALTIN [Concomitant]
     Active Substance: DEXAMETHASONE
     Indication: STOMATITIS
     Dosage: UNK
     Route: 065
     Dates: start: 20180803
  11. MEPTIN [Concomitant]
     Active Substance: PROCATEROL HYDROCHLORIDE
     Indication: COUGH
     Dosage: 0.3 ML, QD
     Route: 048
     Dates: start: 20180807
  12. INTRALIPOS [Concomitant]
     Active Substance: SOYBEAN OIL
     Indication: DECREASED APPETITE
     Dosage: 250 MG, QD
     Route: 042
     Dates: start: 20180802
  13. DECADRON (DEXAMETHASONE SODIUM PHOSPHATE) [Concomitant]
     Active Substance: DEXAMETHASONE SODIUM PHOSPHATE
     Indication: PROPHYLAXIS
     Dosage: 6.6 MG, BEFORE CHEMOTHERAPY
     Route: 042
     Dates: start: 20180719
  14. CAPECITABINE. [Suspect]
     Active Substance: CAPECITABINE
     Indication: GASTRIC CANCER RECURRENT
     Dosage: UNK
     Route: 065
     Dates: start: 20180301
  15. BLINDED NIVOLUMAB [Suspect]
     Active Substance: NIVOLUMAB
     Indication: GASTRIC CANCER RECURRENT
     Dosage: 360 MG, Q3WK
     Route: 065
     Dates: start: 20180301, end: 20180531
  16. ABRAXANE [Concomitant]
     Active Substance: PACLITAXEL
     Indication: GASTRIC CANCER
     Dosage: 140 MG, Q1WK FOR 3 CONSECUTIVE WEEKS,FOLLOWED BY 1 WEEK OFF
     Route: 042
     Dates: start: 20180719
  17. CARBOCISTEINE [Concomitant]
     Active Substance: CARBOCYSTEINE
     Indication: COUGH
     Dosage: 1500 MG, TID
     Route: 048
     Dates: start: 20180719
  18. ROPION [Concomitant]
     Active Substance: FLURBIPROFEN AXETIL
     Indication: PYREXIA
     Dosage: 50 MG, PRN
     Route: 042
     Dates: start: 20180808
  19. ZANTAC [Concomitant]
     Active Substance: RANITIDINE HYDROCHLORIDE
     Indication: PROPHYLAXIS
     Dosage: 50 MG, BEFORE CHEMOTHERAPY
     Route: 042
     Dates: start: 20180719
  20. HIRUDOID [Concomitant]
     Active Substance: GLYCOSAMINOGLYCANS
     Indication: PROPHYLAXIS
     Dosage: UNK, PRN
     Route: 065
     Dates: start: 20180301
  21. TAKECAB [Concomitant]
     Active Substance: VONOPRAZAN FUMURATE
     Indication: PROPHYLAXIS
     Dosage: 10 MG, QD
     Route: 048
  22. DAIPHEN [Concomitant]
     Active Substance: SULFAMETHOXAZOLE\TRIMETHOPRIM
     Indication: PROPHYLAXIS
     Dosage: 1 TAB, QD
     Route: 048
     Dates: start: 20180414
  23. POLARAMINE [Concomitant]
     Active Substance: DEXCHLORPHENIRAMINE MALEATE
     Indication: PROPHYLAXIS
     Dosage: 5 MG, BEFORE CHEMOTHERAPY
     Route: 042
     Dates: start: 20180719
  24. BLINDED PLACEBO [Suspect]
     Active Substance: INVESTIGATIONAL PRODUCT
     Indication: GASTRIC CANCER RECURRENT
     Dosage: 360 MG, Q3WK
     Route: 065
     Dates: start: 20180301, end: 20180531
  25. OXALIPLATIN. [Suspect]
     Active Substance: OXALIPLATIN
     Indication: GASTRIC CANCER RECURRENT
     Dosage: UNK
     Route: 065
     Dates: start: 20180301
  26. CALONAL [Concomitant]
     Active Substance: ACETAMINOPHEN
     Indication: PROPHYLAXIS
     Dosage: 2400 MG, QID
     Route: 048
  27. ELNEOPA NF NO.1 [Concomitant]
     Indication: DECREASED APPETITE
     Dosage: 1000 MG, QD
     Route: 042
     Dates: start: 20180802

REACTIONS (2)
  - Enterocolitis [Recovering/Resolving]
  - Pneumonia [Not Recovered/Not Resolved]

NARRATIVE: CASE EVENT DATE: 20180621
